FAERS Safety Report 14518283 (Version 1)
Quarter: 2018Q1

REPORT INFORMATION
  Report Type: Report from Study
  Country: DE (occurrence: DE)
  Receive Date: 20180212
  Receipt Date: 20180212
  Transmission Date: 20180509
  Serious: Yes (Hospitalization)
  Sender: FDA-Public Use
  Company Number: DE-JNJFOC-20180212243

PATIENT
  Sex: Female

DRUGS (1)
  1. SIMPONI [Suspect]
     Active Substance: GOLIMUMAB
     Indication: RHEUMATOID ARTHRITIS
     Route: 058
     Dates: start: 201610, end: 201612

REACTIONS (4)
  - Diabetic foot [Unknown]
  - Palpitations [Unknown]
  - Abscess limb [Unknown]
  - Alopecia [Unknown]

NARRATIVE: CASE EVENT DATE: 20170124
